FAERS Safety Report 4418050-8 (Version None)
Quarter: 2004Q3

REPORT INFORMATION
  Report Type: 
  Country: None (occurrence: None)
  Receive Date: 20040803
  Receipt Date: 20040722
  Transmission Date: 20050211
  Serious: No
  Sender: FDA-Public Use
  Company Number: S04-USA-00315-01

PATIENT
  Age: 56 Year
  Sex: Male

DRUGS (9)
  1. CELEXA [Suspect]
     Indication: ANXIETY
     Dosage: 40 MG QD PO
     Route: 048
     Dates: start: 20020219, end: 20020224
  2. CELEXA [Suspect]
     Indication: DEPRESSION
     Dosage: 40 MG QD PO
     Route: 048
     Dates: start: 20020219, end: 20020224
  3. XANAX [Suspect]
     Indication: ANXIETY
     Dosage: 0.5 MG BID
  4. DILTIAZEM [Concomitant]
  5. FELODIPINE [Concomitant]
  6. NITROGLYCERIN [Concomitant]
  7. LISINOPRIL [Concomitant]
  8. RANITIDINE [Concomitant]
  9. HYDROXYZINE [Concomitant]

REACTIONS (14)
  - ANXIETY [None]
  - CONFUSIONAL STATE [None]
  - CRYING [None]
  - DIFFICULTY IN WALKING [None]
  - DRY MOUTH [None]
  - DYSURIA [None]
  - HEPATIC FAILURE [None]
  - HYPERHIDROSIS [None]
  - HYPOAESTHESIA [None]
  - OEDEMA PERIPHERAL [None]
  - PARAESTHESIA [None]
  - RASH [None]
  - TREMOR [None]
  - VASODILATATION [None]
